FAERS Safety Report 8205086-4 (Version None)
Quarter: 2012Q1

REPORT INFORMATION
  Report Type: 
  Country: None (occurrence: None)
  Receive Date: 20120313
  Receipt Date: 20120301
  Transmission Date: 20120608
  Serious: Yes (Death)
  Sender: FDA-Public Use
  Company Number: BE-ROCHE-1044716

PATIENT
  Sex: Female
  Weight: 65 kg

DRUGS (7)
  1. HEPARIN SODIUM [Suspect]
     Indication: EXTRACORPOREAL MEMBRANE OXYGENATION
     Route: 042
     Dates: start: 20120217, end: 20120218
  2. CLAVULANATE POTASSIUM [Concomitant]
     Dates: start: 20120215, end: 20120218
  3. DOBUTAMINE HCL [Concomitant]
     Indication: CARDIOGENIC SHOCK
     Route: 042
     Dates: start: 20120215, end: 20120218
  4. NOREPINEPHRINE BITARTRATE [Concomitant]
     Indication: SHOCK
     Route: 042
     Dates: start: 20120215, end: 20120218
  5. TAMIFLU [Suspect]
     Indication: INFLUENZA
     Route: 042
     Dates: start: 20120216, end: 20120218
  6. AMOXICILLIN [Concomitant]
     Indication: PNEUMONIA
     Route: 042
     Dates: start: 20120215, end: 20120218
  7. SODIUM BICARBONATE [Concomitant]
     Route: 042
     Dates: start: 20120215, end: 20120218

REACTIONS (2)
  - SHOCK HAEMORRHAGIC [None]
  - DISSEMINATED INTRAVASCULAR COAGULATION [None]
